FAERS Safety Report 10386521 (Version 1)
Quarter: 2014Q3

REPORT INFORMATION
  Report Type: Spontaneous
  Country: US (occurrence: US)
  Receive Date: 20140815
  Receipt Date: 20140815
  Transmission Date: 20150326
  Serious: No
  Sender: FDA-Public Use
  Company Number: US-009507513-1408USA007817

PATIENT
  Age: 73 Year
  Sex: Female
  Weight: 37.19 kg

DRUGS (7)
  1. MESTINON [Concomitant]
     Active Substance: PYRIDOSTIGMINE BROMIDE
     Dosage: 6 TEASPOONS DAILY BEFORE MEALS
  2. SYNTHROID [Concomitant]
     Active Substance: LEVOTHYROXINE SODIUM
  3. DULERA [Suspect]
     Active Substance: FORMOTEROL FUMARATE DIHYDRATE\MOMETASONE FUROATE
     Indication: LUNG DISORDER
     Dosage: 100-5 MICROGRAMS, 2 INHALATIONS TWICE DAILY
     Route: 048
     Dates: start: 20140506, end: 20140801
  4. VITAMIN D [Concomitant]
     Active Substance: CHOLECALCIFEROL
  5. DULERA [Suspect]
     Active Substance: FORMOTEROL FUMARATE DIHYDRATE\MOMETASONE FUROATE
     Dosage: 100-5 MICROGRAMS, 2 INHALATIONS TWICE DAILY
     Route: 048
     Dates: start: 20140808, end: 20140810
  6. ACCOLATE [Concomitant]
     Active Substance: ZAFIRLUKAST
     Dosage: 20 MG, BID
  7. DULCOLAX [Concomitant]
     Active Substance: BISACODYL OR DOCUSATE SODIUM
     Dosage: EVERY NIGHT

REACTIONS (6)
  - Arthropathy [Unknown]
  - Limb discomfort [Unknown]
  - Asthenia [Unknown]
  - Muscle spasms [Unknown]
  - Myalgia [Unknown]
  - Dysstasia [Unknown]

NARRATIVE: CASE EVENT DATE: 2014
